FAERS Safety Report 5137373-0 (Version None)
Quarter: 2006Q4

REPORT INFORMATION
  Report Type: 
  Country: None (occurrence: None)
  Receive Date: 20061030
  Receipt Date: 20051020
  Transmission Date: 20070319
  Serious: No
  Sender: FDA-Public Use
  Company Number: US-GLAXOSMITHKLINE-A0579006A

PATIENT
  Sex: Female

DRUGS (19)
  1. ADVAIR HFA [Suspect]
     Indication: RESPIRATORY DISORDER
     Dosage: 1PUFF TWICE PER DAY
     Route: 055
     Dates: start: 20050718, end: 20051020
  2. ZYRTEC [Concomitant]
  3. ZOLOFT [Concomitant]
  4. SYNTHROID [Concomitant]
  5. ASPIRIN [Concomitant]
  6. FOLIC ACID [Concomitant]
  7. LOTREL [Concomitant]
  8. POTASSIUM ACETATE [Concomitant]
  9. FOSAMAX [Concomitant]
  10. LIPITOR [Concomitant]
  11. OMEGA-3 [Concomitant]
  12. ASCORBIC ACID [Concomitant]
  13. OSCAL [Concomitant]
  14. NITROGLYCERIN [Concomitant]
  15. LUTEIN [Concomitant]
  16. LASIX [Concomitant]
  17. ENDURE [Concomitant]
  18. ATENOLOL [Concomitant]
  19. NITROGLYCERIN [Concomitant]

REACTIONS (1)
  - DRUG INEFFECTIVE [None]
